FAERS Safety Report 18053177 (Version 1)
Quarter: 2020Q3

REPORT INFORMATION
  Report Type: Spontaneous
  Country: US (occurrence: US)
  Receive Date: 20200721
  Receipt Date: 20200721
  Transmission Date: 20201103
  Serious: No
  Sender: FDA-Public Use
  Company Number: None

PATIENT

DRUGS (1)
  1. SEROQUEL [Suspect]
     Active Substance: QUETIAPINE FUMARATE

REACTIONS (8)
  - Sleep disorder [None]
  - Dizziness [None]
  - Orthostatic hypotension [None]
  - Mania [None]
  - Suicidal behaviour [None]
  - Heart rate increased [None]
  - Fatigue [None]
  - Seizure [None]
